FAERS Safety Report 5399306-1 (Version None)
Quarter: 2007Q3

REPORT INFORMATION
  Report Type: 
  Country: None (occurrence: None)
  Receive Date: 20070727
  Receipt Date: 20070717
  Transmission Date: 20080115
  Serious: Yes (Other)
  Sender: FDA-Public Use
  Company Number: US-SANOFI-SYNTHELABO-A03200702536

PATIENT
  Sex: Male
  Weight: 90.7 kg

DRUGS (1)
  1. AMBIEN [Suspect]
     Indication: DRUG USE FOR UNKNOWN INDICATION
     Dosage: UNK
     Route: 048

REACTIONS (5)
  - AMNESIA [None]
  - CONFUSIONAL STATE [None]
  - IMPAIRED DRIVING ABILITY [None]
  - NYSTAGMUS [None]
  - ROAD TRAFFIC ACCIDENT [None]
